FAERS Safety Report 6051814-6 (Version None)
Quarter: 2009Q1

REPORT INFORMATION
  Report Type: 
  Country: None (occurrence: None)
  Receive Date: 20090126
  Receipt Date: 20090115
  Transmission Date: 20090719
  Serious: Yes (Other)
  Sender: FDA-Public Use
  Company Number: AU-PFIZER INC-2008154195

PATIENT

DRUGS (3)
  1. CHAMPIX [Suspect]
     Indication: SMOKING CESSATION THERAPY
     Dosage: 1 MG, 2X/DAY
     Route: 048
     Dates: start: 20080612, end: 20080717
  2. SERETIDE [Concomitant]
     Route: 055
  3. SPIRIVA [Concomitant]
     Route: 055

REACTIONS (4)
  - ASTHMA [None]
  - DYSPHONIA [None]
  - OROPHARYNGEAL PAIN [None]
  - RESPIRATORY TRACT INFECTION [None]
